FAERS Safety Report 6998682-3 (Version None)
Quarter: 2010Q3

REPORT INFORMATION
  Report Type: 
  Country: None (occurrence: None)
  Receive Date: 20100920
  Receipt Date: 20100914
  Transmission Date: 20110219
  Serious: Yes (Death, Hospitalization)
  Sender: FDA-Public Use
  Company Number: SE-BAYER-201022721GPV

PATIENT
  Age: 58 Year
  Sex: Female

DRUGS (10)
  1. NEXAVAR [Suspect]
     Indication: HEPATIC NEOPLASM MALIGNANT
     Route: 048
     Dates: start: 20100311, end: 20100324
  2. NEXAVAR [Suspect]
     Route: 048
     Dates: start: 20100330, end: 20100414
  3. ACETYLCYSTEINE [Concomitant]
     Route: 048
     Dates: start: 20100311, end: 20100414
  4. ANASTROZOLE [Concomitant]
     Route: 048
     Dates: start: 20070828, end: 20100414
  5. FUROSEMID [Concomitant]
     Route: 048
     Dates: start: 20100310, end: 20100414
  6. LOSARTAN POTASSIUM [Concomitant]
     Dosage: 12.5
     Route: 048
     Dates: start: 20090101, end: 20100325
  7. MORFIN [Concomitant]
     Route: 048
     Dates: start: 20090612, end: 20100414
  8. SPIRONOLACTONE [Concomitant]
     Route: 048
     Dates: start: 20090101, end: 20100325
  9. TIOTROPIUMBROMID [Concomitant]
     Route: 048
     Dates: start: 20090101, end: 20100414
  10. SYMBICORT [Concomitant]
     Dosage: 160/4.5 (...)
     Route: 055
     Dates: start: 20090513, end: 20100414

REACTIONS (2)
  - DEATH [None]
  - INFECTION [None]
